FAERS Safety Report 6904128-3 (Version None)
Quarter: 2010Q3

REPORT INFORMATION
  Report Type: 
  Country: None (occurrence: None)
  Receive Date: 20100804
  Receipt Date: 20090315
  Transmission Date: 20110219
  Serious: No
  Sender: FDA-Public Use
  Company Number: US-PFIZER INC-2009153153

PATIENT
  Sex: Female
  Weight: 78.9 kg

DRUGS (13)
  1. LYRICA [Suspect]
     Indication: FIBROMYALGIA
     Dosage: 100 MG, 2X/DAY
  2. VENOFER [Concomitant]
     Dosage: UNK
  3. PRILOSEC [Concomitant]
     Dosage: UNK
  4. COMPAZINE [Concomitant]
     Dosage: UNK
  5. CLARITIN [Concomitant]
     Dosage: UNK
  6. MULTI-VITAMINS [Concomitant]
     Dosage: UNK
  7. TYLENOL [Concomitant]
     Dosage: UNK
  8. REQUIP [Concomitant]
     Dosage: UNK
  9. SEROQUEL [Concomitant]
     Dosage: UNK
  10. IRON [Concomitant]
     Dosage: UNK
     Route: 048
  11. VICODIN [Concomitant]
     Dosage: UNK
  12. THOMAPYRIN N [Concomitant]
     Dosage: UNK
  13. EFFEXOR [Concomitant]

REACTIONS (5)
  - DIPLOPIA [None]
  - DRUG SCREEN FALSE POSITIVE [None]
  - DYSARTHRIA [None]
  - FALL [None]
  - SOMNOLENCE [None]
